FAERS Safety Report 8952576 (Version 1)
Quarter: 2012Q4

REPORT INFORMATION
  Report Type: 
  Country: FR (occurrence: FR)
  Receive Date: 20121205
  Receipt Date: 20121205
  Transmission Date: 20130627
  Serious: Yes (Hospitalization)
  Sender: FDA-Public Use
  Company Number: FR-BRISTOL-MYERS SQUIBB COMPANY-17160649

PATIENT
  Age: 87 Year
  Sex: Male

DRUGS (2)
  1. COUMADIN TABS [Suspect]
     Route: 048
     Dates: end: 20120809
  2. KARDEGIC [Suspect]
     Dosage: powder for oral solution in sachet-dose .Inter on: 09Aug12
     Route: 048

REACTIONS (2)
  - Subdural haematoma [Recovered/Resolved]
  - Fall [Recovered/Resolved]
